FAERS Safety Report 8157933-2 (Version None)
Quarter: 2012Q1

REPORT INFORMATION
  Report Type: 
  Country: None (occurrence: None)
  Receive Date: 20120222
  Receipt Date: 20120215
  Transmission Date: 20120608
  Serious: Yes (Hospitalization)
  Sender: FDA-Public Use
  Company Number: PHHY2012BR013716

PATIENT
  Sex: Male

DRUGS (6)
  1. SOMALGIN [Concomitant]
     Dosage: 350 MG, UNK
  2. ALENIA [Concomitant]
     Dosage: 6/200 MCG
  3. PANTOPRAZOLE [Concomitant]
     Dosage: 40 MG, UNK
  4. ENALAPRIL MALEATE [Concomitant]
     Dosage: 5 MG, UNK
  5. BENERVA [Concomitant]
     Dosage: 300 MG, UNK
  6. EXELON [Suspect]
     Indication: CEREBRAL ISCHAEMIA
     Dosage: 4.6 MG/24 HOURS (9 MG/5CM^2)
     Route: 062
     Dates: start: 20111101

REACTIONS (1)
  - LUNG INFECTION [None]
